FAERS Safety Report 16741359 (Version 1)
Quarter: 2019Q3

REPORT INFORMATION
  Report Type: Report from Study
  Country: US (occurrence: US)
  Receive Date: 20190826
  Receipt Date: 20190826
  Transmission Date: 20191005
  Serious: Yes (Other)
  Sender: FDA-Public Use
  Company Number: US-INCYTE CORPORATION-2019IN008627

PATIENT

DRUGS (1)
  1. JAKAFI [Suspect]
     Active Substance: RUXOLITINIB
     Indication: MYELOFIBROSIS
     Dosage: 10 MILLIGRAM, BID
     Route: 065
     Dates: start: 2019

REACTIONS (7)
  - Platelet count decreased [Unknown]
  - Dyspnoea [Recovered/Resolved]
  - Splenomegaly [Unknown]
  - Liver injury [Unknown]
  - Renal impairment [Unknown]
  - Anaemia [Unknown]
  - Pulmonary oedema [Recovered/Resolved]
